FAERS Safety Report 24240513 (Version 5)
Quarter: 2025Q1

REPORT INFORMATION
  Report Type: Report from Study
  Country: JP (occurrence: JP)
  Receive Date: 20240822
  Receipt Date: 20250218
  Transmission Date: 20250408
  Serious: Yes (Hospitalization, Other)
  Sender: TAKEDA
  Company Number: JP-TAKEDA-2024TJP012150

PATIENT
  Age: 26 Year
  Sex: Female
  Weight: 41.2 kg

DRUGS (37)
  1. TEDUGLUTIDE [Suspect]
     Active Substance: TEDUGLUTIDE
     Indication: Short-bowel syndrome
  2. TEDUGLUTIDE [Suspect]
     Active Substance: TEDUGLUTIDE
  3. TEDUGLUTIDE [Suspect]
     Active Substance: TEDUGLUTIDE
  4. TEDUGLUTIDE [Suspect]
     Active Substance: TEDUGLUTIDE
  5. VONOPRAZAN FUMARATE [Concomitant]
     Active Substance: VONOPRAZAN FUMARATE
  6. AMINO ACIDS\CARBOHYDRATES\MINERALS\SOYBEAN OIL\VITAMINS [Concomitant]
     Active Substance: AMINO ACIDS\CARBOHYDRATES\MINERALS\SOYBEAN OIL\VITAMINS
     Indication: Short-bowel syndrome
  7. ZOLPIDEM TARTRATE [Concomitant]
     Active Substance: ZOLPIDEM TARTRATE
  8. TRANSAMIN [Concomitant]
     Active Substance: TRANEXAMIC ACID
  9. PENTASA [Concomitant]
     Active Substance: MESALAMINE
  10. CINAL [Concomitant]
  11. ACETAMINOPHEN\TRAMADOL HYDROCHLORIDE [Concomitant]
     Active Substance: ACETAMINOPHEN\TRAMADOL HYDROCHLORIDE
  12. MIANSERIN [Concomitant]
     Active Substance: MIANSERIN
  13. LEXAPRO [Concomitant]
     Active Substance: ESCITALOPRAM OXALATE
  14. ETHYL LOFLAZEPATE [Concomitant]
     Active Substance: ETHYL LOFLAZEPATE
  15. YAZ [Concomitant]
     Active Substance: DROSPIRENONE\ETHINYL ESTRADIOL
  16. POTASSIUM ASPARTATE [Concomitant]
     Active Substance: POTASSIUM ASPARTATE
  17. JUVELA [Concomitant]
     Active Substance: .ALPHA.-TOCOPHEROL\RETINOL
  18. BENZALIN [Concomitant]
  19. LUNESTA [Concomitant]
     Active Substance: ESZOPICLONE
  20. DOMPERIDONE [Concomitant]
     Active Substance: DOMPERIDONE
  21. TRANEXAMIC ACID [Concomitant]
     Active Substance: TRANEXAMIC ACID
  22. TOCOPHERYL NICOTINATE [Concomitant]
     Active Substance: TOCOPHERYL NICOTINATE, D-.ALPHA.
  23. HYTHIOL [Concomitant]
  24. TRAZODONE HYDROCHLORIDE [Concomitant]
     Active Substance: TRAZODONE HYDROCHLORIDE
  25. FURSULTIAMINE [Concomitant]
     Active Substance: FURSULTIAMINE
  26. MIRTAZAPINE [Concomitant]
     Active Substance: MIRTAZAPINE
  27. ESCITALOPRAM OXALATE [Concomitant]
     Active Substance: ESCITALOPRAM OXALATE
  28. TRAMADOL [Concomitant]
     Active Substance: TRAMADOL
  29. LORAZEPAM [Concomitant]
     Active Substance: LORAZEPAM
  30. POTASSIUM GLUCONATE [Concomitant]
     Active Substance: POTASSIUM GLUCONATE
  31. MOSAPRIDE CITRATE [Concomitant]
     Active Substance: MOSAPRIDE CITRATE
  32. FLAGYL [Concomitant]
     Active Substance: METRONIDAZOLE\METRONIDAZOLE HYDROCHLORIDE
  33. MESALAMINE [Concomitant]
     Active Substance: MESALAMINE
  34. DAYVIGO [Concomitant]
     Active Substance: LEMBOREXANT
  35. BROTIZOLAM [Concomitant]
     Active Substance: BROTIZOLAM
  36. SULPIRIDE [Concomitant]
     Active Substance: SULPIRIDE
  37. CLOTIAZEPAM [Concomitant]
     Active Substance: CLOTIAZEPAM

REACTIONS (3)
  - Congenital megacolon [Recovered/Resolved]
  - Congenital megacolon [Recovered/Resolved]
  - Ectopic pregnancy [Recovered/Resolved]

NARRATIVE: CASE EVENT DATE: 20230307
